FAERS Safety Report 25932903 (Version 2)
Quarter: 2025Q4

REPORT INFORMATION
  Report Type: Report from Study
  Country: CL (occurrence: CL)
  Receive Date: 20251017
  Receipt Date: 20251104
  Transmission Date: 20260118
  Serious: Yes (Other)
  Sender: JOHNSON AND JOHNSON
  Company Number: CL-JNJFOC-20251019567

PATIENT
  Age: 58 Year
  Sex: Female

DRUGS (1)
  1. SIMPONI [Suspect]
     Active Substance: GOLIMUMAB
     Indication: Psoriatic arthropathy
     Dosage: LAST REGISTERED ADHERENCE DATE: 10-SEP-2025
     Route: 058
     Dates: start: 20250128

REACTIONS (2)
  - Bronchitis [Recovering/Resolving]
  - Pneumonia [Recovering/Resolving]
